FAERS Safety Report 8583972-3 (Version None)
Quarter: 2012Q3

REPORT INFORMATION
  Report Type: 
  Country: None (occurrence: None)
  Receive Date: 20120810
  Receipt Date: 20120702
  Transmission Date: 20120928
  Serious: No
  Sender: FDA-Public Use
  Company Number: US-009507513-2012SP030509

PATIENT

DRUGS (1)
  1. INTRON A [Suspect]
     Indication: MALIGNANT MELANOMA
     Dosage: 40 MILLION IU, UNK
     Route: 042
     Dates: start: 20120604

REACTIONS (2)
  - CHILLS [None]
  - TREMOR [None]
